FAERS Safety Report 6993739-5 (Version None)
Quarter: 2010Q3

REPORT INFORMATION
  Report Type: 
  Country: None (occurrence: None)
  Receive Date: 20100917
  Receipt Date: 20100309
  Transmission Date: 20110219
  Serious: No
  Sender: FDA-Public Use
  Company Number: US-ASTRAZENECA-2009SE14795

PATIENT
  Age: 17825 Day
  Sex: Male
  Weight: 104.3 kg

DRUGS (3)
  1. SEROQUEL [Suspect]
     Indication: SCHIZOPHRENIA
     Route: 048
     Dates: start: 20020201, end: 20081001
  2. ABILIFY [Concomitant]
     Dosage: 15 MG AM, 30 MG PM
     Dates: start: 20081015
  3. RISPERDAL [Concomitant]
     Dates: start: 20090611

REACTIONS (2)
  - OBESITY [None]
  - TYPE 1 DIABETES MELLITUS [None]
